FAERS Safety Report 15061532 (Version 1)
Quarter: 2018Q2

REPORT INFORMATION
  Report Type: Spontaneous
  Country: US (occurrence: US)
  Receive Date: 20180625
  Receipt Date: 20180625
  Transmission Date: 20180711
  Serious: Yes (Death)
  Sender: FDA-Public Use
  Company Number: US-BEH-2018092059

PATIENT
  Age: 51 Year
  Sex: Male
  Weight: 122.45 kg

DRUGS (23)
  1. SODIUM CHLORIDE. [Concomitant]
     Active Substance: SODIUM CHLORIDE
  2. OXYGEN. [Concomitant]
     Active Substance: OXYGEN
  3. PREDNISONE. [Concomitant]
     Active Substance: PREDNISONE
  4. FAMOTIDINE. [Concomitant]
     Active Substance: FAMOTIDINE
  5. DIPHENHYDRAMINE. [Concomitant]
     Active Substance: DIPHENHYDRAMINE
  6. EPIPEN [Concomitant]
     Active Substance: EPINEPHRINE
  7. BACTRIM DS [Concomitant]
     Active Substance: SULFAMETHOXAZOLE\TRIMETHOPRIM
  8. METOPROLOL SUCCINATE. [Concomitant]
     Active Substance: METOPROLOL SUCCINATE
  9. METFORMIN [Concomitant]
     Active Substance: METFORMIN HYDROCHLORIDE
  10. HUMULIN NOS [Concomitant]
     Active Substance: INSULIN HUMAN
  11. OXAZEPAM. [Concomitant]
     Active Substance: OXAZEPAM
  12. MULTIVITAMIN                       /00097801/ [Concomitant]
     Active Substance: VITAMINS
  13. WELLBUTRIN [Concomitant]
     Active Substance: BUPROPION HYDROCHLORIDE
  14. ZEMAIRA [Suspect]
     Active Substance: .ALPHA.1-PROTEINASE INHIBITOR HUMAN
     Dosage: UNK
     Route: 042
  15. SPIRIVA [Concomitant]
     Active Substance: TIOTROPIUM BROMIDE MONOHYDRATE
  16. HEPARIN [Concomitant]
     Active Substance: HEPARIN SODIUM
  17. FLOVENT [Concomitant]
     Active Substance: FLUTICASONE PROPIONATE
  18. CALCIUM [Concomitant]
     Active Substance: CALCIUM
  19. ADVAIR HFA [Concomitant]
     Active Substance: FLUTICASONE PROPIONATE\SALMETEROL XINAFOATE
  20. ZEMAIRA [Suspect]
     Active Substance: .ALPHA.1-PROTEINASE INHIBITOR HUMAN
     Indication: ALPHA-1 ANTI-TRYPSIN DEFICIENCY
     Dosage: 60 MG/KG, UNK
     Route: 042
     Dates: start: 20070419, end: 20180615
  21. ALBUTEROL                          /00139501/ [Concomitant]
     Active Substance: ALBUTEROL
  22. LMX                                /00033401/ [Concomitant]
  23. DOXYCYCLINE. [Concomitant]
     Active Substance: DOXYCYCLINE

REACTIONS (1)
  - Death [Fatal]

NARRATIVE: CASE EVENT DATE: 20180615
